FAERS Safety Report 18669470 (Version 1)
Quarter: 2020Q4

REPORT INFORMATION
  Report Type: Spontaneous
  Country: US (occurrence: US)
  Receive Date: 20201224
  Receipt Date: 20201224
  Transmission Date: 20210114
  Serious: No
  Sender: FDA-Public Use
  Company Number: None

PATIENT
  Sex: Male

DRUGS (17)
  1. MIRALAX [Concomitant]
     Active Substance: POLYETHYLENE GLYCOL 3350
  2. REKUZORB [Concomitant]
  3. GENERLAC [Concomitant]
     Active Substance: LACTULOSE
  4. MONTELUKAST [Concomitant]
     Active Substance: MONTELUKAST SODIUM
  5. PULMOZYME [Suspect]
     Active Substance: DORNASE ALFA
     Indication: CYSTIC FIBROSIS
     Route: 055
     Dates: start: 20151021
  6. LEVALBUTEROL NEB [Concomitant]
  7. METHYLPHENID [Concomitant]
     Active Substance: METHYLPHENIDATE
  8. ATOMOXETINE. [Concomitant]
     Active Substance: ATOMOXETINE HYDROCHLORIDE
  9. AMOX/K CLAV [Concomitant]
     Active Substance: AMOXICILLIN\CLAVULANATE POTASSIUM
  10. LANSOPRAZOLE. [Concomitant]
     Active Substance: LANSOPRAZOLE
  11. PERTZYE (RETAIL) [Concomitant]
  12. CYPROHEPTAD [Concomitant]
  13. MULTIVITAMIN [Concomitant]
     Active Substance: VITAMINS
  14. RANITIDINE. [Concomitant]
     Active Substance: RANITIDINE
  15. VITAMINS TO GO MAX [Concomitant]
  16. GUANFACINE. [Concomitant]
     Active Substance: GUANFACINE
  17. XOPENEX NEB [Concomitant]

REACTIONS (1)
  - Pulmonary function test decreased [None]
